FAERS Safety Report 25843855 (Version 1)
Quarter: 2025Q3

REPORT INFORMATION
  Report Type: Report from Study
  Country: CN (occurrence: CN)
  Receive Date: 20250925
  Receipt Date: 20250925
  Transmission Date: 20251021
  Serious: Yes (Other)
  Sender: NUVATION BIO
  Company Number: CN-NUVATION BIO INC.-2025NUV000202

PATIENT
  Age: 75 Year
  Sex: Male

DRUGS (2)
  1. TALETRECTINIB ADIPATE [Suspect]
     Active Substance: TALETRECTINIB ADIPATE
     Indication: Lung neoplasm malignant
     Dosage: 400 MILLIGRAM, QD
     Dates: start: 20250809, end: 20250811
  2. TALETRECTINIB ADIPATE [Suspect]
     Active Substance: TALETRECTINIB ADIPATE
     Dosage: 600 MILLIGRAM, QD
     Dates: start: 20250812

REACTIONS (2)
  - Blindness [Unknown]
  - Prescribed underdose [Recovered/Resolved]

NARRATIVE: CASE EVENT DATE: 20250809
